FAERS Safety Report 8060470-7 (Version None)
Quarter: 2012Q1

REPORT INFORMATION
  Report Type: 
  Country: None (occurrence: None)
  Receive Date: 20120120
  Receipt Date: 20120113
  Transmission Date: 20120608
  Serious: Yes (Hospitalization, Other)
  Sender: FDA-Public Use
  Company Number: GR-PFIZER INC-2012010420

PATIENT
  Age: 63 Year
  Sex: Male

DRUGS (1)
  1. VIAGRA [Suspect]
     Indication: ERECTILE DYSFUNCTION
     Dosage: 50 MG, 2X/DAY
     Route: 048
     Dates: start: 20111107, end: 20111115

REACTIONS (7)
  - DEAFNESS UNILATERAL [None]
  - VISUAL IMPAIRMENT [None]
  - GAIT DISTURBANCE [None]
  - DIZZINESS [None]
  - TINNITUS [None]
  - VISUAL ACUITY REDUCED [None]
  - ACOUSTIC NEURITIS [None]
